FAERS Safety Report 7178944-X (Version None)
Quarter: 2010Q4

REPORT INFORMATION
  Report Type: 
  Country: None (occurrence: None)
  Receive Date: 20101221
  Receipt Date: 20101209
  Transmission Date: 20110411
  Serious: Yes (Other)
  Sender: FDA-Public Use
  Company Number: FR-JNJFOC-20101104912

PATIENT
  Sex: Female
  Weight: 57 kg

DRUGS (6)
  1. HALDOL [Suspect]
     Indication: BIPOLAR I DISORDER
     Dosage: 10-0-10
     Route: 048
  2. HALDOL [Suspect]
     Dosage: 10-0-10 MG
     Route: 048
  3. SULFARLEM [Suspect]
     Indication: PRODUCT USED FOR UNKNOWN INDICATION
     Route: 065
  4. PRINCI-B [Suspect]
     Indication: PRODUCT USED FOR UNKNOWN INDICATION
     Route: 065
  5. KESTIN [Suspect]
     Indication: HYPERSENSITIVITY
     Route: 065
  6. LEPTICUR [Concomitant]
     Indication: BIPOLAR I DISORDER
     Route: 065

REACTIONS (11)
  - ECCHYMOSIS [None]
  - FATIGUE [None]
  - HYPERSENSITIVITY [None]
  - LIP ULCERATION [None]
  - MALAISE [None]
  - OCULAR HYPERAEMIA [None]
  - OROPHARYNGEAL PAIN [None]
  - PRURIGO [None]
  - PRURITUS [None]
  - PYREXIA [None]
  - RASH [None]
